FAERS Safety Report 9146109 (Version 3)
Quarter: 2013Q2

REPORT INFORMATION
  Report Type: Spontaneous
  Country: JP (occurrence: JP)
  Receive Date: 20130307
  Receipt Date: 20130514
  Transmission Date: 20140414
  Serious: Yes (Other)
  Sender: FDA-Public Use
  Company Number: JP-MYLANLABS-2013S1004201

PATIENT
  Age: 62 Year
  Sex: Female
  Weight: 52 kg

DRUGS (12)
  1. CARBOPLATIN [Suspect]
     Indication: BREAST CANCER
     Route: 041
     Dates: start: 20121213, end: 20121213
  2. CARBOPLATIN [Suspect]
     Indication: BREAST CANCER
     Route: 041
     Dates: start: 20121227, end: 20121227
  3. CARBOPLATIN [Suspect]
     Indication: BREAST CANCER
     Route: 041
     Dates: start: 20130110, end: 20130110
  4. CARBOPLATIN [Suspect]
     Indication: BREAST CANCER
     Route: 041
     Dates: start: 20130131, end: 20130131
  5. CARBOPLATIN [Suspect]
     Indication: BREAST CANCER
     Route: 041
     Dates: start: 20130221, end: 20130221
  6. TAXOTERE [Suspect]
     Indication: BREAST CANCER
     Route: 041
     Dates: start: 20121213, end: 20121213
  7. TAXOTERE [Suspect]
     Indication: BREAST CANCER
     Route: 041
     Dates: start: 20121227, end: 20121227
  8. TAXOTERE [Suspect]
     Indication: BREAST CANCER
     Route: 041
     Dates: start: 20130110, end: 20130110
  9. TAXOTERE [Suspect]
     Indication: BREAST CANCER
     Route: 041
     Dates: start: 20130131, end: 20130131
  10. TAXOTERE [Suspect]
     Indication: BREAST CANCER
     Route: 041
     Dates: start: 20130221, end: 20130221
  11. HERCEPTIN [Suspect]
     Indication: BREAST CANCER
     Route: 041
     Dates: start: 20121213, end: 20121213
  12. HERCEPTIN [Suspect]
     Indication: BREAST CANCER
     Route: 041
     Dates: start: 20130110

REACTIONS (2)
  - Neutropenia [Recovering/Resolving]
  - Oedema [Recovering/Resolving]
